FAERS Safety Report 4959191-6 (Version None)
Quarter: 2006Q1

REPORT INFORMATION
  Report Type: 
  Country: None (occurrence: None)
  Receive Date: 20060331
  Receipt Date: 20060221
  Transmission Date: 20060701
  Serious: Yes (Disabling)
  Sender: FDA-Public Use
  Company Number: PHHO2006IT03299

PATIENT
  Age: 64 Year
  Sex: Female

DRUGS (2)
  1. STI571 [Suspect]
     Indication: ACUTE LYMPHOCYTIC LEUKAEMIA
     Dosage: 800 MG, QD
     Route: 048
     Dates: start: 20060109, end: 20060217
  2. PREDNISONE [Concomitant]
     Indication: LEUKAEMIA
     Dates: start: 20060109

REACTIONS (3)
  - ERYTHEMA [None]
  - PYREXIA [None]
  - VASCULITIS [None]
